FAERS Safety Report 25000483 (Version 2)
Quarter: 2025Q1

REPORT INFORMATION
  Report Type: Spontaneous
  Country: US (occurrence: US)
  Receive Date: 20250222
  Receipt Date: 20250320
  Transmission Date: 20250408
  Serious: No
  Sender: SANOFI AVENTIS
  Company Number: US-SA-2024SA020284

PATIENT
  Age: 22 Year
  Sex: Female

DRUGS (2)
  1. DUPIXENT [Suspect]
     Active Substance: DUPILUMAB
     Indication: Asthma
     Dosage: 300MG, QOW
     Route: 058
     Dates: start: 202309
  2. CUTAQUIG [Concomitant]
     Active Substance: HUMAN IMMUNOGLOBULIN G

REACTIONS (6)
  - Oliguria [Unknown]
  - Decreased appetite [Unknown]
  - Peripheral swelling [Unknown]
  - Joint swelling [Unknown]
  - Infection [Unknown]
  - Asthma [Unknown]

NARRATIVE: CASE EVENT DATE: 20250201
